FAERS Safety Report 4264439-X (Version None)
Quarter: 2004Q1

REPORT INFORMATION
  Report Type: 
  Country: None (occurrence: None)
  Receive Date: 20040106
  Receipt Date: 20031224
  Transmission Date: 20041129
  Serious: Yes (Other)
  Sender: FDA-Public Use
  Company Number: CH-GLAXOSMITHKLINE-B0318559A

PATIENT
  Age: 46 Year
  Sex: Male

DRUGS (1)
  1. VENTOLIN [Suspect]
     Indication: ASTHMA
     Route: 045
     Dates: start: 20031212, end: 20031212

REACTIONS (3)
  - ANGINA PECTORIS [None]
  - FEAR [None]
  - PANIC ATTACK [None]
